FAERS Safety Report 18038161 (Version 1)
Quarter: 2020Q3

REPORT INFORMATION
  Report Type: Spontaneous
  Country: US (occurrence: US)
  Receive Date: 20200717
  Receipt Date: 20200717
  Transmission Date: 20201103
  Serious: No
  Sender: FDA-Public Use
  Company Number: US-009507513-2007USA000637

PATIENT
  Age: 22 Year
  Sex: Male

DRUGS (15)
  1. TEMODAR [Suspect]
     Active Substance: TEMOZOLOMIDE
     Indication: PARAGANGLION NEOPLASM MALIGNANT
     Dosage: UNK
     Route: 048
  2. LANREOTIDE ACETATE [Concomitant]
     Active Substance: LANREOTIDE ACETATE
     Indication: METASTASES TO LIVER
  3. CAPECITABINE. [Concomitant]
     Active Substance: CAPECITABINE
     Indication: METASTASES TO LIVER
  4. TEMODAR [Suspect]
     Active Substance: TEMOZOLOMIDE
     Indication: METASTASES TO LUNG
  5. LANREOTIDE ACETATE [Concomitant]
     Active Substance: LANREOTIDE ACETATE
     Indication: METASTASES TO LUNG
  6. HYDROCHLOROTHIAZIDE. [Concomitant]
     Active Substance: HYDROCHLOROTHIAZIDE
     Indication: HYPERTENSION
     Dosage: 12.5 MILLIGRAM, DAILY
  7. ESCITALOPRAM [Concomitant]
     Active Substance: ESCITALOPRAM OXALATE
     Dosage: 20 MILLIGRAM, DAILY
  8. AMLODIPINE [Concomitant]
     Active Substance: AMLODIPINE BESYLATE
     Indication: PARAGANGLION NEOPLASM MALIGNANT
  9. OMEPRAZOLE. [Concomitant]
     Active Substance: OMEPRAZOLE
     Dosage: 20 MILLIGRAM, DAILY
  10. METOPROLOL. [Concomitant]
     Active Substance: METOPROLOL
     Indication: HYPERTENSION
     Dosage: 50 MILLIGRAM, DAILY
  11. LANREOTIDE ACETATE [Concomitant]
     Active Substance: LANREOTIDE ACETATE
     Indication: PARAGANGLION NEOPLASM MALIGNANT
  12. TEMODAR [Suspect]
     Active Substance: TEMOZOLOMIDE
     Indication: METASTASES TO LIVER
  13. CAPECITABINE. [Concomitant]
     Active Substance: CAPECITABINE
     Indication: PARAGANGLION NEOPLASM MALIGNANT
  14. CAPECITABINE. [Concomitant]
     Active Substance: CAPECITABINE
     Indication: METASTASES TO LUNG
  15. AMLODIPINE [Concomitant]
     Active Substance: AMLODIPINE BESYLATE
     Indication: HYPERTENSION
     Dosage: 5 MILLIGRAM, DAILY

REACTIONS (1)
  - Off label use [Unknown]
